FAERS Safety Report 17354177 (Version 1)
Quarter: 2020Q1

REPORT INFORMATION
  Report Type: Spontaneous
  Country: CA (occurrence: CA)
  Receive Date: 20200131
  Receipt Date: 20200131
  Transmission Date: 20200409
  Serious: Yes (Hospitalization)
  Sender: FDA-Public Use
  Company Number: CA-TEVA-2020-CA-1176737

PATIENT
  Age: 78 Year
  Sex: Female

DRUGS (3)
  1. TEVA-VENLAFAXINE XR [Suspect]
     Active Substance: VENLAFAXINE HYDROCHLORIDE
     Indication: DEPRESSION
     Dosage: 75 MILLIGRAM DAILY;
     Route: 048
  2. TEVA-VENLAFAXINE XR [Suspect]
     Active Substance: VENLAFAXINE HYDROCHLORIDE
     Indication: CRYING
  3. BUPROPION. [Concomitant]
     Active Substance: BUPROPION

REACTIONS (34)
  - Dehydration [Recovering/Resolving]
  - Pain [Recovering/Resolving]
  - Confusional state [Recovering/Resolving]
  - Dysstasia [Recovering/Resolving]
  - Panic attack [Recovering/Resolving]
  - Protein urine present [Recovering/Resolving]
  - Pruritus [Recovering/Resolving]
  - Asthenia [Recovering/Resolving]
  - Decreased appetite [Recovering/Resolving]
  - Feeling abnormal [Recovering/Resolving]
  - Feeling cold [Recovering/Resolving]
  - Memory impairment [Recovering/Resolving]
  - Anal incontinence [Recovering/Resolving]
  - Alopecia [Recovering/Resolving]
  - Gait disturbance [Recovering/Resolving]
  - Road traffic accident [Recovering/Resolving]
  - Tremor [Recovering/Resolving]
  - Weight decreased [Recovering/Resolving]
  - Dandruff [Recovering/Resolving]
  - Diarrhoea [Recovering/Resolving]
  - Dizziness [Recovering/Resolving]
  - Drooling [Recovering/Resolving]
  - Dysgeusia [Recovering/Resolving]
  - Hypersomnia [Recovering/Resolving]
  - Oral candidiasis [Recovering/Resolving]
  - Dyspnoea [Recovering/Resolving]
  - Fall [Recovering/Resolving]
  - Fatigue [Recovering/Resolving]
  - Fine motor skill dysfunction [Recovering/Resolving]
  - Loss of bladder sensation [Recovering/Resolving]
  - Mental impairment [Recovering/Resolving]
  - Trismus [Recovering/Resolving]
  - Visual impairment [Recovering/Resolving]
  - Coordination abnormal [Recovering/Resolving]
